FAERS Safety Report 4485148-8 (Version None)
Quarter: 2004Q4

REPORT INFORMATION
  Report Type: 
  Country: None (occurrence: None)
  Receive Date: 20041026
  Receipt Date: 20031219
  Transmission Date: 20050328
  Serious: No
  Sender: FDA-Public Use
  Company Number: US-BRISTOL-MYERS SQUIBB COMPANY-12462248

PATIENT
  Age: 57 Year
  Sex: Female
  Weight: 77 kg

DRUGS (1)
  1. GLUCOPHAGE XR [Suspect]
     Indication: DIABETES MELLITUS
     Dosage: THERAPY FROM:  ^OVER A YEAR AGO^
     Route: 048

REACTIONS (2)
  - MEDICATION ERROR [None]
  - SOMNOLENCE [None]
